FAERS Safety Report 4439805-X (Version None)
Quarter: 2004Q3

REPORT INFORMATION
  Report Type: 
  Country: None (occurrence: None)
  Receive Date: 20040831
  Receipt Date: 20040818
  Transmission Date: 20050211
  Serious: Yes (Other)
  Sender: FDA-Public Use
  Company Number: 2003030107

PATIENT
  Age: 81 Year
  Sex: Female

DRUGS (7)
  1. HYDROXYZINE HCL [Suspect]
     Indication: DEPRESSIVE SYMPTOM
     Dosage: 100 MG DAILY
  2. FLUOXETINE [Suspect]
     Indication: DEPRESSIVE SYMPTOM
     Dosage: 20 MG DAILY
  3. TRAMADOL HCL [Suspect]
     Indication: INTERVERTEBRAL DISC DISORDER
     Dosage: 200 MG DAILY
  4. HYDROMORPHONE HCL [Suspect]
     Indication: INTERVERTEBRAL DISC DISORDER
     Dosage: 12 MG DAILY
     Dates: start: 20020101
  5. LISINOPRIL [Concomitant]
  6. PENTOXIFYLLINE [Concomitant]
  7. MONTELUKAST (MONTELUKAST) [Concomitant]

REACTIONS (3)
  - DRUG INTERACTION [None]
  - PAIN [None]
  - SEROTONIN SYNDROME [None]
